FAERS Safety Report 12530808 (Version 4)
Quarter: 2016Q4

REPORT INFORMATION
  Report Type: Report from Study
  Country: US (occurrence: US)
  Receive Date: 20160706
  Receipt Date: 20161007
  Transmission Date: 20170207
  Serious: Yes (Hospitalization, Other)
  Sender: FDA-Public Use
  Company Number: US-BAYER-2016-055875

PATIENT
  Age: 68 Year
  Sex: Male
  Weight: 74.83 kg

DRUGS (10)
  1. ADEMPAS [Suspect]
     Active Substance: RIOCIGUAT
     Indication: PULMONARY ARTERIAL HYPERTENSION
     Dosage: 1 MG, TID
  2. TREPROSTINIL [Concomitant]
     Active Substance: TREPROSTINIL
     Dosage: UNK
     Dates: end: 201607
  3. ADEMPAS [Suspect]
     Active Substance: RIOCIGUAT
     Indication: PULMONARY ARTERIAL HYPERTENSION
     Dosage: 2 MG, TID
     Route: 048
  4. UPTRAVI [Concomitant]
     Active Substance: SELEXIPAG
     Dosage: UNK
  5. ADEMPAS [Suspect]
     Active Substance: RIOCIGUAT
     Indication: PULMONARY ARTERIAL HYPERTENSION
     Dosage: 1.5 MG, TID
  6. REMODULIN [Suspect]
     Active Substance: TREPROSTINIL
     Indication: PULMONARY ARTERIAL HYPERTENSION
     Dosage: 18 NG/KG
     Dates: start: 2016, end: 20160422
  7. ADEMPAS [Suspect]
     Active Substance: RIOCIGUAT
     Indication: PULMONARY ARTERIAL HYPERTENSION
     Dosage: 0.5 MG, TID
     Route: 048
     Dates: start: 20160318
  8. REMODULIN [Suspect]
     Active Substance: TREPROSTINIL
     Indication: PULMONARY ARTERIAL HYPERTENSION
     Dosage: UNK
     Dates: start: 20160317, end: 20160422
  9. ADEMPAS [Suspect]
     Active Substance: RIOCIGUAT
     Indication: PULMONARY ARTERIAL HYPERTENSION
     Dosage: UNK
     Dates: start: 20160316
  10. APIXABAN [Concomitant]
     Active Substance: APIXABAN

REACTIONS (28)
  - Burning sensation [Not Recovered/Not Resolved]
  - Haemoptysis [Unknown]
  - Hypotension [Unknown]
  - Vision blurred [Unknown]
  - Tenderness [None]
  - Constipation [Unknown]
  - Decreased appetite [Unknown]
  - Abdominal tenderness [Unknown]
  - Abnormal loss of weight [Unknown]
  - Pain in extremity [None]
  - Mobility decreased [None]
  - Pain in extremity [Unknown]
  - Mobility decreased [None]
  - Fatigue [None]
  - Infusion site erythema [Unknown]
  - Pain in extremity [None]
  - Abdominal pain lower [Unknown]
  - Haemoptysis [None]
  - Cerebrovascular accident [None]
  - Asthenia [None]
  - Hernia repair [Unknown]
  - Pruritus [Unknown]
  - Abdominal hernia [Unknown]
  - Decreased appetite [Not Recovered/Not Resolved]
  - Pain [Not Recovered/Not Resolved]
  - Decreased appetite [None]
  - Infusion site pain [Unknown]
  - Dyspnoea [Unknown]

NARRATIVE: CASE EVENT DATE: 20160624
